FAERS Safety Report 6413659-4 (Version None)
Quarter: 2009Q4

REPORT INFORMATION
  Report Type: 
  Country: None (occurrence: None)
  Receive Date: 20091026
  Receipt Date: 20090923
  Transmission Date: 20100525
  Serious: No
  Sender: FDA-Public Use
  Company Number: CN-BAYER-200932388GPV

PATIENT
  Age: 36 Year
  Sex: Female

DRUGS (1)
  1. MIRENA [Suspect]
     Indication: ADENOMYOSIS
     Route: 015
     Dates: start: 20090301

REACTIONS (1)
  - LEIOMYOMA [None]
